FAERS Safety Report 4323839-X (Version None)
Quarter: 2004Q1

REPORT INFORMATION
  Report Type: 
  Country: None (occurrence: None)
  Receive Date: 20040323
  Receipt Date: 20040309
  Transmission Date: 20041129
  Serious: Yes (Hospitalization)
  Sender: FDA-Public Use
  Company Number: AU-JNJFOC-20040303549

PATIENT
  Sex: Male

DRUGS (2)
  1. TRAMAL (TRAMADOL HYDROCHLORIDE) UNSPECIFIED [Suspect]
     Indication: OSTEOARTHRITIS
     Dates: start: 20030501, end: 20030501
  2. COVERSYL (PERINDOPRIL) [Concomitant]

REACTIONS (5)
  - ABNORMAL BEHAVIOUR [None]
  - AMNESIA [None]
  - CONFUSIONAL STATE [None]
  - HALLUCINATION [None]
  - PHOBIA [None]
